FAERS Safety Report 7414854-8 (Version None)
Quarter: 2011Q2

REPORT INFORMATION
  Report Type: 
  Country: None (occurrence: None)
  Receive Date: 20110405
  Receipt Date: 20110322
  Transmission Date: 20111010
  Serious: Yes (Hospitalization)
  Sender: FDA-Public Use
  Company Number: 2011001323

PATIENT
  Age: 62 Year
  Sex: Male

DRUGS (1)
  1. TARCEVA [Suspect]
     Indication: SMALL CELL LUNG CANCER STAGE UNSPECIFIED
     Dosage: (150 MG,DAILY), ORAL
     Route: 048
     Dates: start: 20110311, end: 20110319

REACTIONS (1)
  - HALLUCINATION [None]
